FAERS Safety Report 12547815 (Version 1)
Quarter: 2016Q3

REPORT INFORMATION
  Report Type: Report from Study
  Country: US (occurrence: US)
  Receive Date: 20160712
  Receipt Date: 20160712
  Transmission Date: 20161109
  Serious: No
  Sender: FDA-Public Use
  Company Number: US-009507513-1606USA010047

PATIENT

DRUGS (1)
  1. REBETOL [Suspect]
     Active Substance: RIBAVIRIN
     Indication: CHRONIC HEPATITIS C
     Dosage: INITIATED WITH WEIGHT BASED DOSING, MINIMUM OF 600MG/DAILY
     Route: 048

REACTIONS (1)
  - Haemoglobin decreased [Unknown]
